FAERS Safety Report 18422779 (Version 1)
Quarter: 2020Q4

REPORT INFORMATION
  Report Type: Spontaneous
  Country: US (occurrence: US)
  Receive Date: 20201023
  Receipt Date: 20201023
  Transmission Date: 20210114
  Serious: No
  Sender: FDA-Public Use
  Company Number: US-PERRIGO-20US013445

PATIENT
  Age: 44 Year
  Sex: Male
  Weight: 86.17 kg

DRUGS (1)
  1. NICOTINE POLACRILEX [Suspect]
     Active Substance: NICOTINE
     Indication: SMOKING CESSATION THERAPY
     Dosage: 4 MG, QID
     Route: 002
     Dates: start: 20200907, end: 202009

REACTIONS (2)
  - Glossodynia [Recovering/Resolving]
  - Tongue blistering [Recovering/Resolving]

NARRATIVE: CASE EVENT DATE: 20200908
